FAERS Safety Report 20063515 (Version 4)
Quarter: 2022Q1

REPORT INFORMATION
  Report Type: Report from Study
  Country: PL (occurrence: None)
  Receive Date: 20211112
  Receipt Date: 20220303
  Transmission Date: 20220423
  Serious: Yes (Hospitalization)
  Sender: FDA-Public Use
  Company Number: PL-ROCHE-2953036

PATIENT
  Age: 61 Year
  Sex: Female
  Weight: 56 kg

DRUGS (36)
  1. PLACEBO [Suspect]
     Active Substance: UNSPECIFIED INGREDIENT
     Indication: Small cell lung cancer
     Dosage: ON 29/SEP/2021, SHE RECEIVED THE MOST RECENT DOSE OF BLINDED TIRAGOLUMAB PRIOR TO AE/SAE
     Route: 042
     Dates: start: 20210317
  2. ATEZOLIZUMAB [Suspect]
     Active Substance: ATEZOLIZUMAB
     Indication: Small cell lung cancer
     Dosage: ON 29/SEP/2021, SHE RECEIVED THE MOST RECENT DOSE(1200 MG) OF ATEZOLIZUMAB PRIOR TO AE/SAE
     Route: 041
     Dates: start: 20210317
  3. CARBOPLATIN [Suspect]
     Active Substance: CARBOPLATIN
     Indication: Small cell lung cancer
     Dosage: ON 19/MAY/2021, SHE RECEIVED THE MOST RECENT DOSE (685.4 MG) OF CARBOPLATIN PRIOR TO AE/SAE
     Route: 042
     Dates: start: 20210317
  4. ETOPOSIDE [Suspect]
     Active Substance: ETOPOSIDE
     Indication: Small cell lung cancer
     Dosage: ON 21/MAY/2021, SHE RECEIVED THE MOST RECENT DOSE(176 MG) OF ETOPOSIDE PRIOR TO AE/SAE
     Route: 042
     Dates: start: 20210317
  5. EUTHYROX [Concomitant]
     Active Substance: LEVOTHYROXINE SODIUM
     Indication: Hypothyroidism
     Route: 048
  6. BISOPROLOL [Concomitant]
     Active Substance: BISOPROLOL
     Indication: Hypertension
     Route: 048
  7. ASPIRIN [Concomitant]
     Active Substance: ASPIRIN
  8. DEXAK [Concomitant]
     Indication: Arthralgia
     Dates: start: 202102
  9. ONDANSETRON [Concomitant]
     Active Substance: ONDANSETRON
     Dates: start: 20210317
  10. FUROSEMIDE [Concomitant]
     Active Substance: FUROSEMIDE
     Dates: start: 20210317
  11. DEXAMETHASONE [Concomitant]
     Active Substance: DEXAMETHASONE
     Dates: start: 20210317
  12. METOCLOPRAMIDUM [Concomitant]
     Route: 048
     Dates: start: 20210320
  13. IBUPROFEN [Concomitant]
     Active Substance: IBUPROFEN
     Indication: Pain
     Route: 048
     Dates: start: 20210320
  14. ACETAMINOPHEN [Concomitant]
     Active Substance: ACETAMINOPHEN
     Indication: Pain
     Dates: start: 20210423
  15. ACETAMINOPHEN [Concomitant]
     Active Substance: ACETAMINOPHEN
     Dosage: ONGOING YES
     Dates: start: 20211212
  16. LACTULOSE [Concomitant]
     Active Substance: LACTULOSE
     Indication: Constipation
     Dates: start: 20210617
  17. STEROFUNDIN ISO [Concomitant]
     Dosage: ONGOING NO
     Dates: start: 20211107, end: 20211107
  18. MANNITOL [Concomitant]
     Active Substance: MANNITOL
     Dosage: ONGOING NO
     Dates: start: 20211107, end: 20211107
  19. MANNITOL [Concomitant]
     Active Substance: MANNITOL
     Dosage: ONGOING NO
     Dates: start: 20211111, end: 20211115
  20. HEPA-MERZ [Concomitant]
     Dosage: ONGOING NO?GIVEN FOR PROPHYLAXIS YES
     Dates: start: 20211111, end: 20211115
  21. FUROSEMIDE [Concomitant]
     Active Substance: FUROSEMIDE
     Indication: Swelling
     Dosage: ONGOING YES
     Dates: start: 20211111
  22. LACTULOSE [Concomitant]
     Active Substance: LACTULOSE
     Indication: Constipation
     Dosage: ONGOING NO
     Dates: start: 20211115, end: 20211209
  23. ETHAMSYLATE [Concomitant]
     Active Substance: ETHAMSYLATE
     Dosage: ONGOING NO?GIVEN FOR PROPHYLAXIS YES
     Dates: start: 20211116, end: 20211116
  24. TRANEXAMIC ACID [Concomitant]
     Active Substance: TRANEXAMIC ACID
     Dosage: ONGOING NO?GIVEN FOR PROPHYLAXIS YES
     Dates: start: 20211116, end: 20211116
  25. GLYCERIN [Concomitant]
     Active Substance: GLYCERIN
     Indication: Constipation
     Dosage: ONGOING NO
     Dates: start: 20211119, end: 20211120
  26. GLYCERIN [Concomitant]
     Active Substance: GLYCERIN
     Dosage: ONGOING NO
     Dates: start: 20211203, end: 20211203
  27. PROKIT [Concomitant]
     Indication: Constipation
     Dates: start: 20211122, end: 20211209
  28. MEROPENEM [Concomitant]
     Active Substance: MEROPENEM
     Indication: Antibiotic therapy
     Dosage: ONGOING NO
     Dates: start: 20211127, end: 20211206
  29. ATROPINUM [Concomitant]
     Dosage: ONGOING NO
     Dates: start: 20211201, end: 20211201
  30. MIDAZOLAM HYDROCHLORIDE [Concomitant]
     Active Substance: MIDAZOLAM HYDROCHLORIDE
     Dosage: ONGOING NO?GIVEN FOR PROPHYLAXIS YES
     Dates: start: 20211201, end: 20211201
  31. MILGAMMA [Concomitant]
     Indication: Constipation
     Dosage: ONGOING YES
     Dates: start: 20211210
  32. DROTAVERINE HYDROCHLORIDE [Concomitant]
     Active Substance: DROTAVERINE HYDROCHLORIDE
     Dosage: ONGOING NO
     Dates: start: 20211209, end: 20211211
  33. FLUCONAZOLUM [Concomitant]
     Dates: start: 20211210, end: 20211217
  34. HYDROXYZINE HYDROCHLORIDE [Concomitant]
     Active Substance: HYDROXYZINE HYDROCHLORIDE
     Dosage: ONGOING NO?GIVEN FOR PROPHYLAXIS YES
     Dates: start: 20211211, end: 20211215
  35. ACETAMINOPHEN [Concomitant]
     Active Substance: ACETAMINOPHEN
     Indication: Pain
     Dosage: ONGOING YES
     Dates: start: 20211213
  36. ACETAMINOPHEN [Concomitant]
     Active Substance: ACETAMINOPHEN
     Indication: Muscular weakness

REACTIONS (1)
  - Muscular weakness [Not Recovered/Not Resolved]

NARRATIVE: CASE EVENT DATE: 20210930
